FAERS Safety Report 8077618-0 (Version None)
Quarter: 2012Q1

REPORT INFORMATION
  Report Type: 
  Country: None (occurrence: None)
  Receive Date: 20120127
  Receipt Date: 20120119
  Transmission Date: 20120608
  Serious: Yes (Hospitalization)
  Sender: FDA-Public Use
  Company Number: JP-CELGENEUS-087-21880-11021723

PATIENT
  Sex: Male

DRUGS (17)
  1. LANSOPRAZOLE [Concomitant]
     Indication: PROPHYLAXIS
     Dosage: 15 MILLIGRAM
     Route: 048
     Dates: start: 20101014, end: 20110223
  2. AMLODIPINE [Concomitant]
     Indication: HYPERTENSION
     Dosage: 2.5 MILLIGRAM
     Route: 048
     Dates: start: 20101014, end: 20110223
  3. REVLIMID [Suspect]
     Dosage: 20 MILLIGRAM
     Route: 048
     Dates: start: 20101210, end: 20101230
  4. REVLIMID [Suspect]
     Dosage: 15 MILLIGRAM
     Route: 048
     Dates: start: 20110128, end: 20110217
  5. REVLIMID [Suspect]
     Dosage: 20 MILLIGRAM
     Route: 048
     Dates: start: 20101112, end: 20101202
  6. REVLIMID [Suspect]
     Dosage: 15 MILLIGRAM
     Route: 048
     Dates: start: 20110107, end: 20110116
  7. ALFAROL [Concomitant]
     Indication: PROPHYLAXIS
     Dosage: .5 NANOGRAM
     Route: 048
     Dates: start: 20101014, end: 20110223
  8. ACETAMINOPHEN [Concomitant]
     Indication: PROPHYLAXIS
     Dosage: 1800 MILLIGRAM
     Route: 048
     Dates: start: 20101014, end: 20110223
  9. LAXOBERON [Concomitant]
     Indication: PROPHYLAXIS
     Dosage: 5 MILLIGRAM
     Route: 048
     Dates: start: 20101014, end: 20110223
  10. MAGMITT [Concomitant]
     Indication: PROPHYLAXIS
     Dosage: 330 MILLIGRAM
     Route: 048
     Dates: start: 20101014, end: 20110223
  11. DEXAMETHASONE ACETATE [Suspect]
     Indication: MULTIPLE MYELOMA
     Dosage: 16 MILLIGRAM
     Route: 048
     Dates: start: 20101014, end: 20101111
  12. SELBEX [Concomitant]
     Indication: PROPHYLAXIS
     Dosage: 3 CAPSULE
     Route: 048
     Dates: start: 20101014, end: 20110223
  13. REVLIMID [Suspect]
     Indication: MULTIPLE MYELOMA
     Dosage: 20 MILLIGRAM
     Route: 048
     Dates: start: 20101014, end: 20101103
  14. ZOVIRAX [Concomitant]
     Indication: PROPHYLAXIS
     Dosage: 200 MILLIGRAM
     Route: 048
     Dates: start: 20101014, end: 20110223
  15. FENTANYL-100 [Concomitant]
     Indication: PROPHYLAXIS
     Dosage: 21 MILLIGRAM
     Route: 062
     Dates: start: 20101014, end: 20110223
  16. DEXAMETHASONE ACETATE [Suspect]
     Dosage: 16 MILLIGRAM
     Route: 048
     Dates: start: 20101112, end: 20110217
  17. SULFAMETHOXAZOLE [Concomitant]
     Indication: PROPHYLAXIS
     Dosage: 4 TABLET
     Route: 048
     Dates: start: 20101014, end: 20110223

REACTIONS (3)
  - POSTOPERATIVE ILEUS [None]
  - RASH [None]
  - MALAISE [None]
